FAERS Safety Report 25617769 (Version 2)
Quarter: 2025Q4

REPORT INFORMATION
  Report Type: Spontaneous
  Country: US (occurrence: US)
  Receive Date: 20250729
  Receipt Date: 20251107
  Transmission Date: 20260117
  Serious: No
  Sender: ASTELLAS
  Company Number: US-ASTELLAS-2025-AER-039939

PATIENT
  Age: 9 Decade
  Sex: Male

DRUGS (1)
  1. VYLOY [Suspect]
     Active Substance: ZOLBETUXIMAB-CLZB
     Indication: Product used for unknown indication
     Dosage: UNKNOWN DOSE AND FREQUENCY (DID WELL FOR THE FIRST HOUR, INCREASED THE RATE TO 80ML/HR, STOPPED THE
     Route: 065
     Dates: start: 20250716

REACTIONS (3)
  - Flatulence [Recovered/Resolved]
  - Nausea [Recovered/Resolved]
  - Productive cough [Recovered/Resolved]

NARRATIVE: CASE EVENT DATE: 20250716
